FAERS Safety Report 11887272 (Version 1)
Quarter: 2016Q1

REPORT INFORMATION
  Report Type: Spontaneous
  Country: FR (occurrence: FR)
  Receive Date: 20160104
  Receipt Date: 20160104
  Transmission Date: 20160526
  Serious: Yes (Hospitalization)
  Sender: FDA-Public Use
  Company Number: FR-GILEAD-2015-0190485

PATIENT
  Age: 56 Year
  Sex: Male

DRUGS (5)
  1. TOPALGIC                           /00599202/ [Concomitant]
     Active Substance: TRAMADOL
     Indication: ARTHRALGIA
     Route: 065
  2. PROFENID [Concomitant]
     Active Substance: KETOPROFEN
     Indication: ARTHRALGIA
     Route: 065
  3. MIOREL [Concomitant]
     Active Substance: THIOCOLCHICOSIDE
     Indication: ARTHRALGIA
     Route: 065
  4. STRIBILD [Suspect]
     Active Substance: COBICISTAT\ELVITEGRAVIR\EMTRICITABINE\TENOFOVIR DISOPROXIL FUMARATE
     Indication: HIV INFECTION
     Dosage: 1 DF, QD
     Route: 048
     Dates: start: 201411
  5. CRESTOR [Concomitant]
     Active Substance: ROSUVASTATIN CALCIUM
     Indication: DYSLIPIDAEMIA
     Dosage: 10 MG, QD
     Route: 048

REACTIONS (2)
  - Complex regional pain syndrome [Recovering/Resolving]
  - Periarthritis [Recovering/Resolving]

NARRATIVE: CASE EVENT DATE: 201504
